FAERS Safety Report 9733971 (Version 1)
Quarter: 2013Q4

REPORT INFORMATION
  Report Type: Spontaneous
  Country: FR (occurrence: FR)
  Receive Date: 20131205
  Receipt Date: 20131205
  Transmission Date: 20140711
  Serious: Yes (Death)
  Sender: FDA-Public Use
  Company Number: PHHY2013FR141428

PATIENT
  Age: 72 Year
  Sex: Male

DRUGS (4)
  1. CERTICAN [Suspect]
     Dosage: TABLET
     Route: 048
     Dates: start: 20110505
  2. PROGRAF [Suspect]
     Dosage: UNK
     Route: 048
     Dates: start: 201006
  3. CELLCEPT [Suspect]
     Dosage: 250 MG, UNK
     Route: 048
     Dates: start: 201006
  4. CORTANCYL [Suspect]
     Dosage: 5 MG, UNK
     Route: 048

REACTIONS (1)
  - Second primary malignancy [Fatal]
